FAERS Safety Report 10460357 (Version 1)
Quarter: 2014Q3

REPORT INFORMATION
  Report Type: Spontaneous
  Country: CA (occurrence: CA)
  Receive Date: 20140917
  Receipt Date: 20140917
  Transmission Date: 20150326
  Serious: Yes (Death, Other)
  Sender: FDA-Public Use
  Company Number: PHHY2014CA118122

PATIENT
  Age: 84 Year
  Sex: Female

DRUGS (2)
  1. 5-FLUOROURACIL [Suspect]
     Active Substance: FLUOROURACIL
     Indication: ANAL SQUAMOUS CELL CARCINOMA
  2. CISPLATIN. [Suspect]
     Active Substance: CISPLATIN
     Indication: ANAL SQUAMOUS CELL CARCINOMA

REACTIONS (5)
  - Vulval cancer recurrent [Fatal]
  - Anal stenosis [Unknown]
  - Viral pericarditis [Recovering/Resolving]
  - Malignant neoplasm progression [Fatal]
  - Rectal polyp [Unknown]
